FAERS Safety Report 14560665 (Version 2)
Quarter: 2018Q2

REPORT INFORMATION
  Report Type: Spontaneous
  Country: US (occurrence: US)
  Receive Date: 20180222
  Receipt Date: 20180507
  Transmission Date: 20180711
  Serious: Yes (Hospitalization)
  Sender: FDA-Public Use
  Company Number: US-TAKEDA-2018TUS003875

PATIENT
  Sex: Male
  Weight: 2.72 kg

DRUGS (2)
  1. ENTYVIO [Suspect]
     Active Substance: VEDOLIZUMAB
     Dosage: 300 MG, Q4WEEKS
     Dates: start: 201605
  2. ENTYVIO [Suspect]
     Active Substance: VEDOLIZUMAB
     Indication: CROHN^S DISEASE
     Dosage: 300 MG, UNK
     Route: 063
     Dates: start: 201505

REACTIONS (2)
  - Lymphadenitis [Recovered/Resolved]
  - Exposure via breast milk [Unknown]

NARRATIVE: CASE EVENT DATE: 201711
